FAERS Safety Report 8880092 (Version 1)
Quarter: 2012Q4

REPORT INFORMATION
  Report Type: 
  Country: US (occurrence: US)
  Receive Date: 20121101
  Receipt Date: 20121101
  Transmission Date: 20130627
  Serious: No
  Sender: FDA-Public Use
  Company Number: US-TARO-2011P1009296

PATIENT
  Age: 59 Year
  Sex: Male
  Weight: 86.18 kg

DRUGS (5)
  1. PHENYTOIN SODIUM EXTENDED CAPSULES USP 100MG [Suspect]
     Indication: EPILEPSY
     Dates: start: 20110922
  2. PHENYTOIN SODIUM EXTENDED CAPSULES [Suspect]
     Indication: EPILEPSY
     Dates: start: 20110922, end: 20111006
  3. PHENYTOIN SODIUM EXTENDED CAPSULES USP 100MG [Suspect]
     Indication: EPILEPSY
     Dates: start: 20111006, end: 201110
  4. PHENYTOIN SODIUM EXTENDED CAPSULES USP 100MG [Suspect]
     Indication: EPILEPSY
     Dates: start: 20111008
  5. PHENYTOIN SODIUM EXTENDED CAPSULES USP 100MG [Suspect]
     Indication: EPILEPSY
     Dates: start: 201110

REACTIONS (4)
  - Vision blurred [Recovered/Resolved]
  - Gait disturbance [Recovered/Resolved]
  - Product substitution issue [Not Recovered/Not Resolved]
  - Anticonvulsant drug level above therapeutic [Unknown]
